FAERS Safety Report 7979402-2 (Version None)
Quarter: 2011Q4

REPORT INFORMATION
  Report Type: 
  Country: None (occurrence: None)
  Receive Date: 20111214
  Receipt Date: 20111202
  Transmission Date: 20120403
  Serious: Yes (Death, Hospitalization)
  Sender: FDA-Public Use
  Company Number: JP-AMGEN-JPNCT2011002367

PATIENT
  Age: 61 Year
  Sex: Male
  Weight: 78 kg

DRUGS (12)
  1. JUZENTAIHOTO [Concomitant]
     Dosage: UNK
     Route: 048
  2. LIVACT [Concomitant]
     Dosage: UNK
     Route: 048
  3. BASEN [Concomitant]
     Dosage: UNK
     Route: 048
  4. ACTOS [Concomitant]
     Dosage: UNK
     Route: 048
  5. PANITUMUMAB [Suspect]
     Indication: COLORECTAL CANCER
     Dosage: 6 MG/KG, Q2WK
     Route: 041
     Dates: start: 20100917, end: 20101118
  6. LASIX [Concomitant]
     Dosage: UNK
     Route: 048
  7. HIRUDOID SOFT [Concomitant]
     Dosage: UNK
     Route: 062
  8. LOCOID [Concomitant]
     Dosage: UNK
     Route: 062
  9. BETAMETHASONE [Concomitant]
     Dosage: UNK
     Route: 048
  10. URSO 250 [Concomitant]
     Dosage: UNK
     Route: 048
  11. PROMAC D [Concomitant]
     Indication: PROPHYLAXIS
     Dosage: UNK
     Route: 048
  12. MAGMITT [Concomitant]
     Dosage: UNK
     Route: 048

REACTIONS (5)
  - COLORECTAL CANCER [None]
  - DERMATITIS ACNEIFORM [None]
  - PARONYCHIA [None]
  - ABDOMINAL DISTENSION [None]
  - OEDEMA [None]
